FAERS Safety Report 6693086-5 (Version None)
Quarter: 2010Q2

REPORT INFORMATION
  Report Type: 
  Country: None (occurrence: None)
  Receive Date: 20100422
  Receipt Date: 20100413
  Transmission Date: 20101027
  Serious: Yes (Other)
  Sender: FDA-Public Use
  Company Number: US-SANOFI-AVENTIS-2010SA022846

PATIENT
  Sex: Male

DRUGS (10)
  1. ELOXATIN [Suspect]
     Indication: RECTAL CANCER
     Dosage: EVERY WEEK ON DAYS 1, 8, 15, 22, AND 29 DURING RADIOTHERAPY PREOPERATIVELY
     Route: 041
     Dates: start: 20090715, end: 20090715
  2. ELOXATIN [Suspect]
     Dosage: EVERY WEEK ON DAYS 1, 8, 15, 22, AND 29 DURING RADIOTHERAPY PREOPERATIVELY
     Route: 041
  3. ELOXATIN [Suspect]
     Dosage: ON DAY 1 OF CYCLE FOR 9 CYCLES
     Route: 041
  4. BEVACIZUMAB [Suspect]
     Indication: RECTAL CANCER
     Dosage: OVER 30-90 MINUTES EVERY OTHER WEEK ON DAYS 1, 15, 29 DURING RADIOTHERAPY PRE-OPERATIVELY
     Route: 041
     Dates: start: 20090715, end: 20090715
  5. BEVACIZUMAB [Suspect]
     Dosage: OVER 30-90 MINUTES EVERY OTHER WEEK ON DAYS 1, 15, 29 DURING RADIOTHERAPY PRE-OPERATIVELY
     Route: 041
  6. BEVACIZUMAB [Suspect]
     Dosage: OVER 90-30 MINUTES ON DAY 1 OF CYCLE FOR 12 CYCLES
     Route: 041
     Dates: start: 20100120, end: 20100120
  7. CAPECITABINE [Suspect]
     Indication: RECTAL CANCER
     Dosage: TWICE DAILY 5 DAYS A WEEK FOR 5.5 WEEKS DURING RADIOTHERAPY
     Route: 048
     Dates: start: 20090715
  8. LEUCOVORIN CALCIUM [Suspect]
     Indication: RECTAL CANCER
     Dosage: OVER 2 HOURS ON DAY 1 OF CYCLE FOR 12 CYCLES
     Route: 041
  9. FLUOROURACIL [Suspect]
     Indication: RECTAL CANCER
     Dosage: ON DAY 1 OF CYCLE FOR 12 CYCLES
     Route: 042
  10. THERAPEUTIC RADIOPHARMACEUTICALS [Concomitant]
     Dosage: 50.4 GY AT 1.8 GY / FRACTION ONCE DAILY 5 DAYS WEEK PRE-OPERATIVELY
     Dates: start: 20090715

REACTIONS (1)
  - ANAL FISTULA [None]
